FAERS Safety Report 20882501 (Version 1)
Quarter: 2022Q2

REPORT INFORMATION
  Report Type: Spontaneous
  Country: DK (occurrence: DK)
  Receive Date: 20220527
  Receipt Date: 20220527
  Transmission Date: 20220720
  Serious: Yes (Disabling, Other)
  Sender: FDA-Public Use
  Company Number: None

PATIENT
  Age: 70 Year
  Sex: Male
  Weight: 90 kg

DRUGS (10)
  1. FILGRASTIM [Suspect]
     Active Substance: FILGRASTIM
     Indication: Myelodysplastic syndrome
     Dosage: 60000000 IU, WEEKLY. STRENGTH: 30 MIO IU/ 0.5 ML
     Route: 058
     Dates: start: 2015, end: 20170830
  2. FILGRASTIM [Suspect]
     Active Substance: FILGRASTIM
     Indication: Myelodysplastic syndrome
     Dosage: UNK
     Dates: start: 201209, end: 201410
  3. FILGRASTIM [Suspect]
     Active Substance: FILGRASTIM
     Dosage: UNK
     Dates: start: 201502, end: 2015
  4. NEUPOGEN [Suspect]
     Active Substance: FILGRASTIM
     Indication: Myelodysplastic syndrome
     Dosage: 1 DF, WEEKLY
     Dates: start: 201108, end: 201209
  5. NEUPOGEN [Suspect]
     Active Substance: FILGRASTIM
     Dosage: 1 DF, WEEKLY
     Dates: start: 201410, end: 20150216
  6. COZAAR [Concomitant]
     Active Substance: LOSARTAN POTASSIUM
     Indication: Hypertension
     Dosage: 25 MG, 1X/DAY (START DATE UNKNOWN, BUT BEFORE 2015)
     Route: 048
  7. UNIKALK SILVER [Concomitant]
     Indication: Vitamin supplementation
     Dosage: 1 DF, 1X/DAY
     Route: 048
     Dates: start: 20161128
  8. METOPROLOL SUCCINATE [Concomitant]
     Active Substance: METOPROLOL SUCCINATE
     Indication: Heart rate irregular
     Dosage: 100 MG, 1X/DAY
     Route: 048
     Dates: start: 20150218
  9. PINEX [Concomitant]
     Indication: Pain
     Dosage: 1-2 TABLETS MAX. 3-4 TIMES DAILY (AS NEEDED). STARTDATE UNKNOWN, BUT BEFORE 2015
     Route: 048
  10. WARFARIN SODIUM [Concomitant]
     Active Substance: WARFARIN SODIUM
     Indication: Thrombosis prophylaxis
     Dosage: 5 MG, 1X/DAY
     Route: 048
     Dates: start: 20150526

REACTIONS (7)
  - Interstitial lung disease [Recovered/Resolved]
  - Hypersensitivity pneumonitis [Recovered/Resolved]
  - Dyspnoea [Recovering/Resolving]
  - Haemoptysis [Recovering/Resolving]
  - Cough [Recovering/Resolving]
  - Dermatitis [Recovered/Resolved]
  - Inflammation [Unknown]

NARRATIVE: CASE EVENT DATE: 20130401
